FAERS Safety Report 7291147-3 (Version None)
Quarter: 2011Q1

REPORT INFORMATION
  Report Type: 
  Country: None (occurrence: None)
  Receive Date: 20110214
  Receipt Date: 20110203
  Transmission Date: 20110831
  Serious: Yes (Hospitalization, Other)
  Sender: FDA-Public Use
  Company Number: US-JNJFOC-20110201810

PATIENT
  Sex: Male
  Weight: 68.04 kg

DRUGS (3)
  1. REMICADE [Suspect]
     Indication: COLITIS ULCERATIVE
     Route: 042
  2. IMURAN [Concomitant]
     Indication: COLITIS ULCERATIVE
     Route: 048
  3. SOLU-MEDROL [Concomitant]
     Indication: PREMEDICATION

REACTIONS (8)
  - HOSPITALISATION [None]
  - INFUSION RELATED REACTION [None]
  - COLITIS ULCERATIVE [None]
  - CHEST DISCOMFORT [None]
  - DYSPNOEA [None]
  - DRUG EFFECT DECREASED [None]
  - ANTIBODY TEST POSITIVE [None]
  - DRUG LEVEL DECREASED [None]
